FAERS Safety Report 25078339 (Version 1)
Quarter: 2025Q1

REPORT INFORMATION
  Report Type: Spontaneous
  Country: US (occurrence: None)
  Receive Date: 20250313
  Receipt Date: 20250313
  Transmission Date: 20250408
  Serious: Yes (Hospitalization)
  Sender: FDA-CTU
  Company Number: None

PATIENT
  Sex: Female

DRUGS (7)
  1. OPSUMIT [Suspect]
     Active Substance: MACITENTAN
     Indication: Pulmonary arterial hypertension
     Dosage: FREQUENCY : DAILY;?
     Route: 048
     Dates: start: 202008
  2. TYVASO DPI [Concomitant]
     Active Substance: TREPROSTINIL
  3. WINREVAIR [Concomitant]
     Active Substance: SOTATERCEPT-CSRK
  4. ADEMPAS [Concomitant]
     Active Substance: RIOCIGUAT
  5. TYVASO DPI MAINT KIT PWD [Concomitant]
  6. ADEMPAS [Concomitant]
     Active Substance: RIOCIGUAT
  7. WINREVAIR [Concomitant]
     Active Substance: SOTATERCEPT-CSRK

REACTIONS (2)
  - Haemoglobin decreased [None]
  - Therapy cessation [None]
